FAERS Safety Report 5744796-5 (Version None)
Quarter: 2008Q2

REPORT INFORMATION
  Report Type: 
  Country: None (occurrence: None)
  Receive Date: 20080520
  Receipt Date: 20080414
  Transmission Date: 20081010
  Serious: Yes (Other)
  Sender: FDA-Public Use
  Company Number: AR-AMGEN-US272879

PATIENT
  Sex: Female
  Weight: 47 kg

DRUGS (2)
  1. ENBREL [Suspect]
     Indication: RHEUMATOID ARTHRITIS
     Route: 058
     Dates: start: 20040531, end: 20060601
  2. ACIFOL [Concomitant]
     Indication: MEDICAL DIET

REACTIONS (2)
  - DRUG TOXICITY [None]
  - LICHENOID KERATOSIS [None]
